FAERS Safety Report 19031329 (Version 1)
Quarter: 2021Q1

REPORT INFORMATION
  Report Type: Spontaneous
  Country: US (occurrence: US)
  Receive Date: 20210319
  Receipt Date: 20210319
  Transmission Date: 20210420
  Serious: Yes (Other)
  Sender: FDA-Public Use
  Company Number: US-ELI_LILLY_AND_COMPANY-US202103007731

PATIENT
  Sex: Female

DRUGS (1)
  1. EVISTA [Suspect]
     Active Substance: RALOXIFENE HYDROCHLORIDE
     Indication: HORMONE REPLACEMENT THERAPY
     Dosage: UNK UNK, UNKNOWN
     Route: 065
     Dates: start: 1990

REACTIONS (5)
  - Osteopenia [Unknown]
  - Osteoporosis [Unknown]
  - Bone density decreased [Not Recovered/Not Resolved]
  - Hypertension [Unknown]
  - Aortic dilatation [Unknown]

NARRATIVE: CASE EVENT DATE: 2002
